FAERS Safety Report 6441521-X (Version None)
Quarter: 2009Q4

REPORT INFORMATION
  Report Type: 
  Country: None (occurrence: None)
  Receive Date: 20091112
  Receipt Date: 20091029
  Transmission Date: 20100525
  Serious: Yes (Other)
  Sender: FDA-Public Use
  Company Number: 232474J09USA

PATIENT
  Age: 45 Year
  Sex: Female
  Weight: 95 kg

DRUGS (11)
  1. REBIF [Suspect]
     Indication: MULTIPLE SCLEROSIS
     Dosage: 44 MCG, 3 IN 1 WEEKS, SUBCUTANEOUS
     Route: 058
     Dates: start: 20090227
  2. CELEXA [Concomitant]
  3. NEXIUM [Concomitant]
  4. LISINOPRIL (LISINOPRIL DIHYDRATE) [Concomitant]
  5. PROVIGIL [Concomitant]
  6. LIPITOR [Concomitant]
  7. LITHIUM CARBONATE [Concomitant]
  8. AMBIEN [Concomitant]
  9. TOPAMAX [Concomitant]
  10. TRAZODONE HCL [Concomitant]
  11. IBUPROFEN [Concomitant]

REACTIONS (4)
  - ABDOMINAL PAIN [None]
  - CHOLECYSTECTOMY [None]
  - DIABETES MELLITUS [None]
  - GALLBLADDER DISORDER [None]
